FAERS Safety Report 9668107 (Version 1)
Quarter: 2013Q4

REPORT INFORMATION
  Report Type: Spontaneous
  Country: US (occurrence: None)
  Receive Date: 20131101
  Receipt Date: 20131101
  Transmission Date: 20140711
  Serious: Yes (Death)
  Sender: FDA-Public Use
  Company Number: 2013-US-002457

PATIENT
  Age: 55 Year
  Sex: Female

DRUGS (1)
  1. FAZACLO [Suspect]
     Indication: SCHIZOPHRENIA
     Route: 048
     Dates: start: 20080320

REACTIONS (2)
  - Pneumonia [None]
  - Refusal of treatment by patient [None]
